FAERS Safety Report 24181437 (Version 1)
Quarter: 2024Q3

REPORT INFORMATION
  Report Type: Spontaneous
  Country: CN (occurrence: CN)
  Receive Date: 20240807
  Receipt Date: 20240807
  Transmission Date: 20241017
  Serious: Yes (Death, Other)
  Sender: SANDOZ
  Company Number: CN-SANDOZ-SDZ2023CN071804

PATIENT

DRUGS (5)
  1. ASPIRIN [Suspect]
     Active Substance: ASPIRIN
     Indication: Product used for unknown indication
     Dosage: 100 MG/TIME, QD
     Route: 065
  2. ISOSORBIDE MONONITRATE [Suspect]
     Active Substance: ISOSORBIDE MONONITRATE
     Indication: Angina unstable
     Dosage: 10 - 20 MG/TIME, 2 - 3 TIMES/D
     Route: 065
  3. ISOSORBIDE MONONITRATE [Suspect]
     Active Substance: ISOSORBIDE MONONITRATE
     Indication: Stenosis
  4. ATORVASTATIN CALCIUM [Suspect]
     Active Substance: ATORVASTATIN CALCIUM
     Indication: Angina unstable
     Dosage: 10 - 80 MG/TIME
     Route: 048
  5. ATORVASTATIN CALCIUM [Suspect]
     Active Substance: ATORVASTATIN CALCIUM
     Indication: Stenosis

REACTIONS (7)
  - Cardiac death [Fatal]
  - Arrhythmia [Unknown]
  - Myocardial infarction [Unknown]
  - Gastrointestinal disorder [Unknown]
  - Headache [Unknown]
  - Hypotension [Unknown]
  - Therapy non-responder [Unknown]
